FAERS Safety Report 8669322 (Version 3)
Quarter: 2012Q4

REPORT INFORMATION
  Report Type: 
  Country: US (occurrence: US)
  Receive Date: 20120717
  Receipt Date: 20121030
  Transmission Date: 20130627
  Serious: Yes (Other)
  Sender: FDA-Public Use
  Company Number: US-BAYER-2012-070307

PATIENT
  Age: 43 Year
  Sex: Female
  Weight: 64.4 kg

DRUGS (2)
  1. MIRENA [Suspect]
     Indication: CONTRACEPTION
     Dosage: 20 mcg/24hr, CONT
     Route: 015
     Dates: start: 20120507, end: 20120625
  2. IMITREX [Concomitant]
     Indication: MIGRAINE
     Dosage: 25 mg, PRN

REACTIONS (6)
  - Vaginal haemorrhage [Recovered/Resolved]
  - Pelvic pain [None]
  - Discomfort [None]
  - Device dislocation [Recovered/Resolved]
  - Device physical property issue [None]
  - Ovarian cyst [None]
